FAERS Safety Report 8413778-7 (Version None)
Quarter: 2012Q2

REPORT INFORMATION
  Report Type: 
  Country: None (occurrence: None)
  Receive Date: 20120605
  Receipt Date: 20120529
  Transmission Date: 20120825
  Serious: Yes (Death, Hospitalization)
  Sender: FDA-Public Use
  Company Number: AU-ROCHE-1047023

PATIENT
  Sex: Female

DRUGS (5)
  1. RANIBIZUMAB [Suspect]
     Route: 050
     Dates: start: 20111006
  2. RAMIPRIL [Concomitant]
     Indication: HYPERTENSION
  3. RANIBIZUMAB [Suspect]
     Indication: PRODUCT USED FOR UNKNOWN INDICATION
     Route: 050
     Dates: start: 20070807
  4. ISOPTIN [Concomitant]
     Indication: HYPERTENSION
  5. PRAVACHOL [Concomitant]

REACTIONS (6)
  - FALL [None]
  - DEATH [None]
  - CARDIAC FAILURE CONGESTIVE [None]
  - RIB FRACTURE [None]
  - MULTIPLE MYELOMA [None]
  - RENAL FAILURE [None]
